FAERS Safety Report 6429634-X (Version None)
Quarter: 2009Q4

REPORT INFORMATION
  Report Type: 
  Country: None (occurrence: None)
  Receive Date: 20091103
  Receipt Date: 20091019
  Transmission Date: 20100525
  Serious: Yes (Death)
  Sender: FDA-Public Use
  Company Number: 02100-JPN-06-0015

PATIENT
  Age: 65 Year
  Sex: Male
  Weight: 53 kg

DRUGS (3)
  1. PLETAL [Suspect]
     Indication: CEREBRAL INFARCTION
     Dosage: 81 MG, QD ORAL
     Route: 048
     Dates: start: 20040918, end: 20060119
  2. ALLOPURINOL [Concomitant]
  3. ASPIRIN [Suspect]

REACTIONS (14)
  - ATAXIA [None]
  - BLOOD PRESSURE INCREASED [None]
  - BODY TEMPERATURE DECREASED [None]
  - BRAIN HERNIATION [None]
  - BRAIN STEM SYNDROME [None]
  - CARDIAC ARREST [None]
  - CEREBRAL HAEMORRHAGE [None]
  - COMA [None]
  - FALL [None]
  - HEART RATE DECREASED [None]
  - MYDRIASIS [None]
  - OXYGEN SATURATION DECREASED [None]
  - QUADRIPLEGIA [None]
  - RESPIRATORY RATE INCREASED [None]
